FAERS Safety Report 15226158 (Version 6)
Quarter: 2018Q4

REPORT INFORMATION
  Report Type: Spontaneous
  Country: US (occurrence: US)
  Receive Date: 20180801
  Receipt Date: 20181203
  Transmission Date: 20190204
  Serious: Yes (Hospitalization, Other)
  Sender: FDA-Public Use
  Company Number: US-GLAXOSMITHKLINE-US2018GSK135848

PATIENT
  Age: 43 Year
  Sex: Female
  Weight: 97.4 kg

DRUGS (3)
  1. FLOLAN [Suspect]
     Active Substance: EPOPROSTENOL SODIUM
     Indication: PULMONARY ARTERIAL HYPERTENSION
     Dosage: 11 NG/KG/MIN, CO
     Route: 042
     Dates: start: 20170825, end: 20180927
  2. FLOLAN DILUENT PH 12 [Suspect]
     Active Substance: GLYCINE\MANNITOL\SODIUM CHLORIDE
     Indication: PULMONARY ARTERIAL HYPERTENSION
     Dosage: UNK
     Route: 042
     Dates: start: 20170825, end: 20180927
  3. OXYGEN. [Concomitant]
     Active Substance: OXYGEN

REACTIONS (6)
  - Device related infection [Unknown]
  - Central venous catheterisation [Unknown]
  - Colitis [Recovered/Resolved]
  - Medication error [Unknown]
  - Malaise [Unknown]
  - Complication associated with device [Unknown]

NARRATIVE: CASE EVENT DATE: 20180707
